FAERS Safety Report 10525077 (Version 2)
Quarter: 2014Q4

REPORT INFORMATION
  Report Type: Spontaneous
  Country: US (occurrence: US)
  Receive Date: 20141017
  Receipt Date: 20141121
  Transmission Date: 20150528
  Serious: No
  Sender: FDA-Public Use
  Company Number: US-PFIZER INC-2014280505

PATIENT
  Age: 70 Year
  Sex: Female

DRUGS (2)
  1. SERTRALINE HCL [Suspect]
     Active Substance: SERTRALINE HYDROCHLORIDE
     Indication: ANXIETY
     Dosage: 50 MG, DAILY (IN MORNING)
     Route: 048
     Dates: start: 2014
  2. KLONOPIN [Suspect]
     Active Substance: CLONAZEPAM
     Indication: SLEEP DISORDER
     Dosage: 0.5 MG, 1X/DAY (AT NIGHT)
     Dates: start: 2013, end: 20141007

REACTIONS (4)
  - Malaise [Recovered/Resolved]
  - Urinary tract disorder [Recovered/Resolved]
  - Urinary tract infection [Recovered/Resolved]
  - Cystitis [Unknown]
